FAERS Safety Report 19471842 (Version 2)
Quarter: 2021Q3

REPORT INFORMATION
  Report Type: Report from Study
  Country: None (occurrence: US)
  Receive Date: 20210628
  Receipt Date: 20210706
  Transmission Date: 20211014
  Serious: Yes (Hospitalization, Other)
  Sender: FDA-Public Use
  Company Number: US-ABBVIE-21K-163-3967245-00

PATIENT
  Sex: Female
  Weight: 115.32 kg

DRUGS (3)
  1. PREDNISONE. [Concomitant]
     Active Substance: PREDNISONE
     Indication: RHEUMATOID ARTHRITIS
  2. RINVOQ [Suspect]
     Active Substance: UPADACITINIB
     Indication: RHEUMATOID ARTHRITIS
     Route: 048
     Dates: start: 202008
  3. VITAMIN C [Concomitant]
     Active Substance: ASCORBIC ACID
     Indication: IMMUNE SYSTEM DISORDER

REACTIONS (5)
  - Osteoporotic fracture [Unknown]
  - Stomatitis [Recovering/Resolving]
  - Intracranial mass [Recovering/Resolving]
  - Vitamin D deficiency [Recovering/Resolving]
  - Osteoporosis [Recovering/Resolving]

NARRATIVE: CASE EVENT DATE: 2020
